FAERS Safety Report 11113254 (Version 1)
Quarter: 2015Q2

REPORT INFORMATION
  Report Type: Spontaneous
  Country: US (occurrence: US)
  Receive Date: 20150514
  Receipt Date: 20150514
  Transmission Date: 20150821
  Serious: Yes (Other)
  Sender: FDA-Public Use
  Company Number: US-GILEAD-2015-0147806

PATIENT
  Age: 59 Year
  Sex: Female
  Weight: 85.71 kg

DRUGS (2)
  1. HARVONI [Suspect]
     Active Substance: LEDIPASVIR\SOFOSBUVIR
     Indication: HEPATITIS C
     Dosage: UNK
     Route: 065
     Dates: start: 20150204
  2. RIBAVIRIN. [Suspect]
     Active Substance: RIBAVIRIN
     Indication: HEPATITIS C
     Dosage: UNK
     Route: 065
     Dates: start: 20150204, end: 201503

REACTIONS (4)
  - Depression [Recovering/Resolving]
  - Dyspnoea [Unknown]
  - Anxiety [Recovering/Resolving]
  - Palpitations [Recovering/Resolving]

NARRATIVE: CASE EVENT DATE: 20150212
